FAERS Safety Report 5131084-3 (Version None)
Quarter: 2006Q3

REPORT INFORMATION
  Report Type: 
  Country: None (occurrence: None)
  Receive Date: 20060825
  Receipt Date: 20050802
  Transmission Date: 20061208
  Serious: Yes (Disabling)
  Sender: FDA-Public Use
  Company Number: 2005110183

PATIENT
  Sex: Male

DRUGS (10)
  1. VFEND [Suspect]
     Indication: MENINGITIS COCCIDIOIDES
     Dosage: 400 MG (200 MG, BID)
     Dates: start: 20040601, end: 20050201
  2. CLOBETASOL (CLOBETASOL) [Concomitant]
  3. MS CONTIN [Concomitant]
  4. FIORICET (BUTALITAL, CAFFEINE, PARACETAMOL) [Concomitant]
  5. PHENERGAN (PROMETHAZINE HYDROCHLORIDE) [Concomitant]
  6. MORPHINE SULFATE [Concomitant]
  7. KETOROLAC [Concomitant]
  8. GUAIFENESIN [Concomitant]
  9. LONG TERM MELOXICAM (MELOXICAM) [Concomitant]
  10. FLUCONAZOLE [Concomitant]

REACTIONS (3)
  - FATIGUE [None]
  - PERIPHERAL MOTOR NEUROPATHY [None]
  - SENSORY LOSS [None]
